FAERS Safety Report 4551018-X (Version None)
Quarter: 2005Q1

REPORT INFORMATION
  Report Type: 
  Country: None (occurrence: None)
  Receive Date: 20050113
  Receipt Date: 20031107
  Transmission Date: 20050727
  Serious: No
  Sender: FDA-Public Use
  Company Number: US-BRISTOL-MYERS SQUIBB COMPANY-12430880

PATIENT
  Age: 54 Year
  Sex: Female
  Weight: 59 kg

DRUGS (4)
  1. TRAZODONE HCL [Suspect]
     Indication: INSOMNIA
     Route: 048
  2. PAXIL [Concomitant]
  3. LEVOTHROID [Concomitant]
  4. MULTIVITAMIN [Concomitant]

REACTIONS (1)
  - ABDOMINAL PAIN UPPER [None]
